FAERS Safety Report 17652674 (Version 1)
Quarter: 2020Q2

REPORT INFORMATION
  Report Type: Spontaneous
  Country: US (occurrence: US)
  Receive Date: 20200409
  Receipt Date: 20200409
  Transmission Date: 20200713
  Serious: No
  Sender: FDA-Public Use
  Company Number: US-PFIZER INC-2020144925

PATIENT
  Sex: Male
  Weight: 85 kg

DRUGS (5)
  1. ETHAMBUTOL [Suspect]
     Active Substance: ETHAMBUTOL HYDROCHLORIDE
     Indication: MYCOBACTERIAL INFECTION
     Dosage: UNK
  2. BICTEGRAVIR [Suspect]
     Active Substance: BICTEGRAVIR
     Indication: HIV INFECTION
     Dosage: 1 DF, 1X/DAY {1 DOSAGE FORM, QD (ONCE A DAY)}
     Route: 048
     Dates: start: 20180714, end: 20180921
  3. CLARITHROMYCIN. [Suspect]
     Active Substance: CLARITHROMYCIN
     Indication: MYCOBACTERIAL INFECTION
     Dosage: UNK
  4. AZITHROMYCIN 1A PHARMA [AZITHROMYCIN] [Concomitant]
     Active Substance: AZITHROMYCIN
     Dosage: UNK
     Dates: start: 20180727, end: 20180727
  5. MYCOBUTIN [Suspect]
     Active Substance: RIFABUTIN
     Indication: MYCOBACTERIAL INFECTION
     Dosage: UNK

REACTIONS (1)
  - Weight increased [Recovered/Resolved]

NARRATIVE: CASE EVENT DATE: 201808
